FAERS Safety Report 7135793-6 (Version None)
Quarter: 2010Q4

REPORT INFORMATION
  Report Type: 
  Country: None (occurrence: None)
  Receive Date: 20101203
  Receipt Date: 20101123
  Transmission Date: 20110411
  Serious: Yes (Hospitalization, Other)
  Sender: FDA-Public Use
  Company Number: US-MERCK-0907USA00159

PATIENT
  Age: 74 Year
  Sex: Female
  Weight: 73 kg

DRUGS (1)
  1. FOSAMAX [Suspect]
     Indication: OSTEOPOROSIS
     Route: 048
     Dates: start: 20030117, end: 20070701

REACTIONS (40)
  - BREAST PAIN [None]
  - BRONCHITIS [None]
  - CHRONIC OBSTRUCTIVE PULMONARY DISEASE [None]
  - DECREASED APPETITE [None]
  - DERMATITIS ALLERGIC [None]
  - DIARRHOEA [None]
  - DISLOCATION OF VERTEBRA [None]
  - DRUG HYPERSENSITIVITY [None]
  - DRUG INEFFECTIVE [None]
  - GALLBLADDER DISORDER [None]
  - GASTROINTESTINAL HAEMORRHAGE [None]
  - GLOSSODYNIA [None]
  - HYPOTENSION [None]
  - HYPOXIA [None]
  - INSOMNIA [None]
  - JOINT DISLOCATION [None]
  - JOINT SPRAIN [None]
  - LICHEN PLANUS [None]
  - LIGAMENT SPRAIN [None]
  - LUNG DISORDER [None]
  - MUSCLE STRAIN [None]
  - MUSCULOSKELETAL CHEST PAIN [None]
  - NEUROPATHY PERIPHERAL [None]
  - OEDEMA PERIPHERAL [None]
  - ORAL PAIN [None]
  - OSTEOMYELITIS [None]
  - OSTEONECROSIS OF JAW [None]
  - OSTEOPENIA [None]
  - PAIN [None]
  - PAIN IN JAW [None]
  - PERIODONTAL DISEASE [None]
  - PERIODONTITIS [None]
  - PNEUMONIA [None]
  - POLYCYTHAEMIA VERA [None]
  - PYREXIA [None]
  - RIB FRACTURE [None]
  - TOOTH DISORDER [None]
  - TREMOR [None]
  - TRIGEMINAL NEURALGIA [None]
  - VERTIGO [None]
